FAERS Safety Report 8760867 (Version 1)
Quarter: 2012Q4

REPORT INFORMATION
  Report Type: 
  Country: US (occurrence: US)
  Receive Date: 20120830
  Receipt Date: 20120830
  Transmission Date: 20130627
  Serious: Yes (Hospitalization, Other)
  Sender: FDA-Public Use
  Company Number: US-JNJFOC-20120808581

PATIENT
  Sex: Female
  Weight: 63.5 kg

DRUGS (14)
  1. DURAGESIC [Suspect]
     Indication: BACK PAIN
     Route: 062
  2. DURAGESIC [Suspect]
     Indication: BACK PAIN
     Route: 062
  3. DURAGESIC [Suspect]
     Indication: BACK PAIN
     Route: 062
  4. DURAGESIC [Suspect]
     Indication: BACK PAIN
     Route: 062
  5. DURAGESIC [Suspect]
     Indication: BACK PAIN
     Route: 062
  6. DURAGESIC [Suspect]
     Indication: BACK PAIN
     Route: 062
  7. DURAGESIC [Suspect]
     Indication: BACK PAIN
     Route: 062
  8. DURAGESIC [Suspect]
     Indication: BACK PAIN
     Route: 062
  9. DURAGESIC [Suspect]
     Indication: BACK PAIN
     Route: 062
  10. DURAGESIC [Suspect]
     Indication: BACK PAIN
     Route: 062
  11. DURAGESIC [Suspect]
     Indication: BACK PAIN
     Route: 062
     Dates: start: 200206, end: 200206
  12. DURAGESIC [Suspect]
     Indication: BACK PAIN
     Route: 062
     Dates: start: 200207, end: 2002
  13. DURAGESIC [Suspect]
     Indication: BACK PAIN
     Route: 062
     Dates: start: 2002
  14. DURAGESIC [Suspect]
     Indication: BACK PAIN
     Route: 062

REACTIONS (9)
  - Back pain [Unknown]
  - Hypothyroidism [Recovered/Resolved]
  - Abnormal loss of weight [Unknown]
  - Addison^s disease [Unknown]
  - Hyperthyroidism [Not Recovered/Not Resolved]
  - Hypotension [Unknown]
  - Fatigue [Recovered/Resolved]
  - Blister [Not Recovered/Not Resolved]
  - Skin injury [Not Recovered/Not Resolved]
